FAERS Safety Report 4633836-2 (Version None)
Quarter: 2005Q2

REPORT INFORMATION
  Report Type: 
  Country: None (occurrence: None)
  Receive Date: 20050413
  Receipt Date: 20050404
  Transmission Date: 20051028
  Serious: Yes (Hospitalization)
  Sender: FDA-Public Use
  Company Number: US-BRISTOL-MYERS SQUIBB COMPANY-12920880

PATIENT
  Age: 65 Year
  Sex: Female

DRUGS (5)
  1. TAXOL [Suspect]
     Indication: NON-SMALL CELL LUNG CANCER
     Route: 042
     Dates: start: 20041129, end: 20041129
  2. CARBOPLATIN [Suspect]
     Indication: NON-SMALL CELL LUNG CANCER
     Route: 042
     Dates: start: 20041129, end: 20041129
  3. PROCRIT [Suspect]
     Indication: ANAEMIA OF MALIGNANT DISEASE
  4. ARANESP [Suspect]
     Indication: ANAEMIA OF MALIGNANT DISEASE
     Route: 058
     Dates: start: 20041001, end: 20041001
  5. RADIATION THERAPY [Suspect]
     Indication: NON-SMALL CELL LUNG CANCER

REACTIONS (4)
  - ANAEMIA [None]
  - COUGH [None]
  - NEUTROPENIA [None]
  - PYREXIA [None]
